FAERS Safety Report 4889659-2 (Version None)
Quarter: 2006Q1

REPORT INFORMATION
  Report Type: 
  Country: None (occurrence: None)
  Receive Date: 20060120
  Receipt Date: 20060120
  Transmission Date: 20060701
  Serious: Yes (Hospitalization, Other)
  Sender: FDA-Public Use
  Company Number: None

PATIENT
  Sex: Female
  Weight: 84.54 kg

DRUGS (11)
  1. DOXORUBICIN [Suspect]
     Indication: ENDOMETRIAL CANCER
     Dosage: SEE IMAGE
     Dates: start: 20051215
  2. CISPLATIN [Suspect]
     Dosage: SEE IMAGE
     Dates: start: 20051215
  3. PACLITAXEL [Suspect]
     Dosage: SEE IMAGE
     Dates: start: 20051215
  4. G-CSF [Suspect]
     Dosage: SEE IMAGE
     Dates: start: 20051215
  5. ATIVAN [Concomitant]
  6. EMEND [Concomitant]
  7. MIRALAX [Concomitant]
  8. SENNA [Concomitant]
  9. ZOFRAN [Concomitant]
  10. OXYCODONE [Concomitant]
  11. OXYCONTIN [Concomitant]

REACTIONS (6)
  - ABDOMINAL PAIN [None]
  - BACK PAIN [None]
  - CONSTIPATION [None]
  - DEVICE RELATED INFECTION [None]
  - ENTEROBACTER INFECTION [None]
  - FEBRILE NEUTROPENIA [None]
